FAERS Safety Report 9909498 (Version 2)
Quarter: 2014Q1

REPORT INFORMATION
  Report Type: Spontaneous
  Country: US (occurrence: US)
  Receive Date: 20140219
  Receipt Date: 20140219
  Transmission Date: 20141002
  Serious: No
  Sender: FDA-Public Use
  Company Number: US-GILEAD-2012-0056078

PATIENT
  Age: 57 Year
  Sex: Female

DRUGS (3)
  1. LETAIRIS [Suspect]
     Indication: PULMONARY HYPERTENSION
     Dosage: 10 MG, UNK
     Route: 048
     Dates: start: 20120503
  2. LETAIRIS [Suspect]
     Indication: CONNECTIVE TISSUE DISORDER
     Dosage: 5 MG, UNK
     Route: 048
     Dates: start: 20110815
  3. LETAIRIS [Suspect]
     Indication: SJOGREN^S SYNDROME
     Dosage: 5 UNK, UNK
     Route: 048
     Dates: end: 20120611

REACTIONS (4)
  - Fatigue [Recovering/Resolving]
  - Rash [Recovering/Resolving]
  - Local swelling [Recovering/Resolving]
  - Oedema [Unknown]
